FAERS Safety Report 15729619 (Version 2)
Quarter: 2019Q2

REPORT INFORMATION
  Report Type: Spontaneous
  Country: BR (occurrence: BR)
  Receive Date: 20181217
  Receipt Date: 20190401
  Transmission Date: 20190711
  Serious: Yes (Other)
  Sender: FDA-Public Use
  Company Number: BR-INCYTE CORPORATION-2018IN012721

PATIENT

DRUGS (6)
  1. JAKAVI [Suspect]
     Active Substance: RUXOLITINIB
     Dosage: 4 DF, QD
     Route: 048
  2. SPIRONOLACTONE. [Concomitant]
     Active Substance: SPIRONOLACTONE
     Indication: PRODUCT USED FOR UNKNOWN INDICATION
     Dosage: UNK
     Route: 048
     Dates: start: 2012
  3. PROPRANOLOL [Concomitant]
     Active Substance: PROPRANOLOL HYDROCHLORIDE
     Indication: PRODUCT USED FOR UNKNOWN INDICATION
     Dosage: UNK
     Route: 048
     Dates: start: 2012
  4. JAKAVI [Suspect]
     Active Substance: RUXOLITINIB
     Indication: MYELOFIBROSIS
     Dosage: 20 MG, BID (2 MONTHS)
     Route: 065
     Dates: start: 20181020
  5. JAKAVI [Suspect]
     Active Substance: RUXOLITINIB
     Dosage: 2 DF, QD
     Route: 048
  6. JAKAVI [Suspect]
     Active Substance: RUXOLITINIB
     Dosage: 1 DF, QD
     Route: 048

REACTIONS (8)
  - Poikilocytosis [Unknown]
  - Anaemia [Not Recovered/Not Resolved]
  - Leukopenia [Not Recovered/Not Resolved]
  - Anisocytosis [Unknown]
  - Polychromasia [Unknown]
  - Platelet count decreased [Not Recovered/Not Resolved]
  - Platelet morphology abnormal [Unknown]
  - Hypochromasia [Unknown]

NARRATIVE: CASE EVENT DATE: 20181204
